FAERS Safety Report 10003994 (Version 1)
Quarter: 2014Q1

REPORT INFORMATION
  Report Type: Spontaneous
  Country: US (occurrence: US)
  Receive Date: 20140312
  Receipt Date: 20140312
  Transmission Date: 20141002
  Serious: Yes (Other)
  Sender: FDA-Public Use
  Company Number: US-ABBVIE-13P-163-1136577-00

PATIENT
  Age: 34 Year
  Sex: Male
  Weight: 55.84 kg

DRUGS (3)
  1. DEPAKOTE [Suspect]
     Indication: EPILEPSY
     Dosage: UNKNOWN
     Dates: start: 1993
  2. ZONISAMIDE [Concomitant]
     Indication: EPILEPSY
  3. LAMICTAL [Concomitant]
     Indication: EPILEPSY

REACTIONS (5)
  - Convulsion [Recovered/Resolved]
  - Tongue injury [Recovered/Resolved]
  - Hallucination [Not Recovered/Not Resolved]
  - Anticonvulsant drug level below therapeutic [Not Recovered/Not Resolved]
  - Injury [Recovered/Resolved]
